FAERS Safety Report 24135784 (Version 1)
Quarter: 2024Q3

REPORT INFORMATION
  Report Type: Spontaneous
  Country: US (occurrence: US)
  Receive Date: 20240725
  Receipt Date: 20240725
  Transmission Date: 20241016
  Serious: Yes (Other)
  Sender: AMGEN
  Company Number: US-AMGEN-USASP2024142476

PATIENT
  Age: 39 Year
  Sex: Male

DRUGS (30)
  1. PREDNISONE [Suspect]
     Active Substance: PREDNISONE
     Indication: Keratitis
     Dosage: UNK
     Route: 048
  2. PREDNISONE [Suspect]
     Active Substance: PREDNISONE
     Dosage: 60 MILLIGRAM, QD
     Route: 048
     Dates: start: 202001, end: 202001
  3. PREDNISONE [Suspect]
     Active Substance: PREDNISONE
     Dosage: 10 MILLIGRAM, Q2WK, TAPPER
     Route: 048
     Dates: start: 202001
  4. PREDNISONE [Suspect]
     Active Substance: PREDNISONE
     Dosage: 10 MILLIGRAM, QWK
     Route: 048
     Dates: start: 202002
  5. PREDNISONE [Suspect]
     Active Substance: PREDNISONE
     Dosage: 60 MILLIGRAM, QD
     Route: 048
     Dates: start: 202004
  6. PREDNISONE [Suspect]
     Active Substance: PREDNISONE
     Dosage: 10 MILLIGRAM, Q2WK
     Route: 048
     Dates: start: 202004
  7. PREDNISONE [Suspect]
     Active Substance: PREDNISONE
     Dosage: 60 MILLIGRAM, QD
     Route: 048
     Dates: start: 202005
  8. PREDNISONE [Suspect]
     Active Substance: PREDNISONE
     Dosage: 120 MILLIGRAM, QD, FOR A THREE-DAY TRIAL
     Route: 048
     Dates: start: 202006
  9. PREDNISONE [Suspect]
     Active Substance: PREDNISONE
     Dosage: 60 MILLIGRAM, QD
     Route: 048
     Dates: start: 202007
  10. PREDNISONE [Suspect]
     Active Substance: PREDNISONE
     Dosage: 40 MILLIGRAM
     Route: 065
  11. PREDNISONE [Suspect]
     Active Substance: PREDNISONE
     Dosage: 5 MILLIGRAM, Q2WK, TAPER
     Route: 065
  12. METHOTREXATE [Concomitant]
     Active Substance: METHOTREXATE
     Indication: Keratitis
     Dosage: 7.5 MILLIGRAM, QWK
     Route: 048
     Dates: start: 202001
  13. METHOTREXATE [Concomitant]
     Active Substance: METHOTREXATE
     Dosage: 20 MILLIGRAM, QWK
     Route: 048
     Dates: start: 202004
  14. METHOTREXATE [Concomitant]
     Active Substance: METHOTREXATE
     Dosage: 25 MILLIGRAM, QWK
     Route: 048
     Dates: start: 202005
  15. FOLIC ACID [Concomitant]
     Active Substance: FOLIC ACID
     Indication: Keratitis
     Dosage: UNK
     Route: 048
     Dates: start: 202001
  16. PREDNISOLONE ACETATE [Concomitant]
     Active Substance: PREDNISOLONE ACETATE
     Indication: Keratitis
     Dosage: UNK
     Route: 065
  17. PREDNISOLONE ACETATE [Concomitant]
     Active Substance: PREDNISOLONE ACETATE
     Indication: Corneal infiltrates
     Dosage: UNK, EYE DROPS SIX TIMES PER DAY IN THE LEFT EYE
     Route: 065
     Dates: start: 202001
  18. PREDNISOLONE ACETATE [Concomitant]
     Active Substance: PREDNISOLONE ACETATE
     Dosage: UNK UNK, QID
     Route: 048
     Dates: start: 202004
  19. PREDNISOLONE ACETATE [Concomitant]
     Active Substance: PREDNISOLONE ACETATE
     Dosage: UNK, QID
     Route: 065
  20. PREDNISOLONE ACETATE [Concomitant]
     Active Substance: PREDNISOLONE ACETATE
     Dosage: UNK, QID
     Route: 065
     Dates: start: 202107
  21. SULFAMETHOXAZOLE\TRIMETHOPRIM [Concomitant]
     Active Substance: SULFAMETHOXAZOLE\TRIMETHOPRIM
     Indication: Keratitis
     Dosage: 800/160 MILLIGRAM, BID
     Route: 048
     Dates: start: 202002
  22. SULFAMETHOXAZOLE\TRIMETHOPRIM [Concomitant]
     Active Substance: SULFAMETHOXAZOLE\TRIMETHOPRIM
     Dosage: 800/160 MILLIGRAM, BID
     Route: 048
     Dates: start: 202007
  23. CEFTAZIDIME [Concomitant]
     Active Substance: CEFTAZIDIME
     Dosage: UNK, SUBCONJUNCTIVAL INJECTIONS
     Route: 065
     Dates: start: 202002
  24. AMIKACIN [Concomitant]
     Active Substance: AMIKACIN
     Indication: Keratitis
     Dosage: UNK, SUBCONJUNCTIVAL INJECTIONS
     Route: 065
     Dates: start: 202002
  25. VORICONAZOLE [Concomitant]
     Active Substance: VORICONAZOLE
     Indication: Keratitis
     Dosage: 200 MILLIGRAM, BID
     Route: 065
     Dates: start: 202002
  26. VORICONAZOLE [Concomitant]
     Active Substance: VORICONAZOLE
     Dosage: 300 MILLIGRAM, BID
     Route: 065
     Dates: start: 202007
  27. DOXYCYCLINE [Concomitant]
     Active Substance: DOXYCYCLINE\DOXYCYCLINE HYCLATE
     Indication: Keratitis
     Dosage: 100 MILLIGRAM, BID
     Route: 048
     Dates: start: 202005
  28. MOXIFLOXACIN [Concomitant]
     Active Substance: MOXIFLOXACIN
     Indication: Keratitis
     Dosage: UNK UNK, QID
     Route: 065
  29. MOXIFLOXACIN [Concomitant]
     Active Substance: MOXIFLOXACIN
     Indication: Corneal infiltrates
  30. VALACYCLOVIR [Concomitant]
     Active Substance: VALACYCLOVIR HYDROCHLORIDE
     Indication: Prophylaxis
     Dosage: 1 GRAM, TID
     Route: 048
     Dates: start: 202006

REACTIONS (3)
  - Cystoid macular oedema [Unknown]
  - Necrotising scleritis [Unknown]
  - Bacillus infection [Unknown]

NARRATIVE: CASE EVENT DATE: 20200601
